FAERS Safety Report 15670791 (Version 6)
Quarter: 2025Q3

REPORT INFORMATION
  Report Type: Spontaneous
  Country: EU (occurrence: EU)
  Receive Date: 20181129
  Receipt Date: 20250808
  Transmission Date: 20251020
  Serious: Yes (Hospitalization, Other)
  Sender: ALEXION PHARMACEUTICALS
  Company Number: EU-ALEXION PHARMACEUTICALS INC-A201815446

PATIENT
  Age: 47 Year
  Sex: Female

DRUGS (2)
  1. SOLIRIS [Suspect]
     Active Substance: ECULIZUMAB
     Indication: Paroxysmal nocturnal haemoglobinuria
     Dosage: 900 MG/KG, Q2W
     Dates: start: 2013
  2. CYCLOSPORINE [Suspect]
     Active Substance: CYCLOSPORINE
     Indication: Paroxysmal nocturnal haemoglobinuria
     Dosage: 3 MG/KG, QD
     Dates: start: 2017

REACTIONS (2)
  - Ecthyma [Recovered/Resolved]
  - Pseudomonas infection [Recovered/Resolved]
